FAERS Safety Report 5779668-3 (Version None)
Quarter: 2008Q2

REPORT INFORMATION
  Report Type: 
  Country: None (occurrence: None)
  Receive Date: 20080617
  Receipt Date: 20080602
  Transmission Date: 20081010
  Serious: Yes (Hospitalization)
  Sender: FDA-Public Use
  Company Number: 2008001178

PATIENT
  Age: 73 Year
  Sex: Male

DRUGS (9)
  1. ERLOTINIB                (TABLET) (ERLOTINIB) [Suspect]
     Indication: NON-SMALL CELL LUNG CANCER
     Dosage: (150 MG, QD), ORAL
     Route: 048
     Dates: start: 20080430, end: 20080503
  2. ANTIBIOTIC DRUG NOS [Concomitant]
  3. FAMOTIDINE [Concomitant]
  4. BASEN (VOGLIBOSE) [Concomitant]
  5. AMARYL [Concomitant]
  6. AMLODIPINE BESYLATE [Concomitant]
  7. DIOVAN [Concomitant]
  8. PROMAC [Concomitant]
  9. LENDORM [Concomitant]

REACTIONS (7)
  - CARDIOVASCULAR DISORDER [None]
  - CHRONIC OBSTRUCTIVE PULMONARY DISEASE [None]
  - HYPERTENSION [None]
  - HYPOGLYCAEMIA [None]
  - LUNG DISORDER [None]
  - NO THERAPEUTIC RESPONSE [None]
  - PERFORMANCE STATUS DECREASED [None]
